FAERS Safety Report 4577766-3 (Version None)
Quarter: 2005Q1

REPORT INFORMATION
  Report Type: 
  Country: None (occurrence: None)
  Receive Date: 20050209
  Receipt Date: 20050127
  Transmission Date: 20050727
  Serious: Yes (Other)
  Sender: FDA-Public Use
  Company Number: 2005BI002087

PATIENT
  Sex: Female

DRUGS (3)
  1. AVONEX [Suspect]
     Indication: MULTIPLE SCLEROSIS
     Dosage: 30 UG;QW; IM
     Route: 030
  2. ADVIL [Concomitant]
  3. TYLENOL (CAPLET) [Concomitant]

REACTIONS (4)
  - FALL [None]
  - HEPATIC ENZYME INCREASED [None]
  - OCULAR ICTERUS [None]
  - VISUAL DISTURBANCE [None]
